FAERS Safety Report 5398221-7 (Version None)
Quarter: 2007Q3

REPORT INFORMATION
  Report Type: 
  Country: None (occurrence: None)
  Receive Date: 20070726
  Receipt Date: 20070716
  Transmission Date: 20080115
  Serious: Yes (Other)
  Sender: FDA-Public Use
  Company Number: GB-PFIZER INC-2007058723

PATIENT
  Sex: Female

DRUGS (3)
  1. ZARONTIN [Suspect]
     Route: 048
  2. PHENYTOIN [Concomitant]
  3. OPIOIDS [Concomitant]

REACTIONS (1)
  - INTESTINAL OBSTRUCTION [None]
